FAERS Safety Report 11139505 (Version 11)
Quarter: 2015Q4

REPORT INFORMATION
  Report Type: Spontaneous
  Country: FR (occurrence: FR)
  Receive Date: 20150527
  Receipt Date: 20151231
  Transmission Date: 20160304
  Serious: Yes (Hospitalization, Other)
  Sender: FDA-Public Use
  Company Number: FR-PFIZER INC-2014284978

PATIENT
  Age: 75 Year
  Sex: Female
  Weight: 50 kg

DRUGS (16)
  1. SOVALDI [Interacting]
     Active Substance: SOFOSBUVIR
     Dosage: UNK
     Route: 065
     Dates: start: 20140819
  2. SOVALDI [Interacting]
     Active Substance: SOFOSBUVIR
     Dosage: 400 MG, DAILY
  3. PREDNISONE. [Concomitant]
     Active Substance: PREDNISONE
     Dosage: 5 MG, DAILY
  4. PREVISCAN [Concomitant]
     Active Substance: FLUINDIONE
     Dosage: 10 MG, DAILY
  5. LEVOTHYROX [Concomitant]
     Active Substance: LEVOTHYROXINE
     Dosage: 100 UG, DAILY
  6. BROMAZEPAM [Concomitant]
     Active Substance: BROMAZEPAM
     Dosage: 3 MG, DAILY
  7. OLYSIO [Interacting]
     Active Substance: SIMEPREVIR
     Indication: HEPATITIS C VIRUS TEST POSITIVE
     Dosage: 150 MG, DAILY
     Route: 048
     Dates: start: 20140703, end: 20140703
  8. SOVALDI [Interacting]
     Active Substance: SOFOSBUVIR
     Dosage: UNK
     Route: 065
     Dates: start: 201408
  9. ALDACTONE [Concomitant]
     Active Substance: SPIRONOLACTONE
     Dosage: 50 MG, DAILY
  10. SOVALDI [Interacting]
     Active Substance: SOFOSBUVIR
     Indication: HEPATITIS C VIRUS TEST POSITIVE
     Dosage: 400 MG, DAILY
     Route: 048
     Dates: start: 20140703, end: 20140703
  11. RIBAVIRIN. [Suspect]
     Active Substance: RIBAVIRIN
     Indication: HEPATITIS C VIRUS TEST POSITIVE
     Dosage: 1000 MG, DAILY
     Route: 065
     Dates: start: 20140819
  12. ENBREL [Concomitant]
     Active Substance: ETANERCEPT
     Dosage: 50 MG / 10 DAYS
  13. CORDARONE [Interacting]
     Active Substance: AMIODARONE HYDROCHLORIDE
     Indication: ATRIAL FLUTTER
     Dosage: 200 MG, DAILY
     Route: 048
     Dates: start: 201210
  14. PREDNISOLONE. [Concomitant]
     Active Substance: PREDNISOLONE
     Dosage: UNK
  15. CHOLECALCIFEROL [Suspect]
     Active Substance: CHOLECALCIFEROL
     Dosage: 400 MG, DAILY
     Route: 065
  16. MOPRAL [Concomitant]
     Active Substance: OMEPRAZOLE SODIUM
     Dosage: 20 MG, DAILY

REACTIONS (5)
  - Sinus bradycardia [Recovered/Resolved]
  - Hypotension [Recovered/Resolved]
  - Sinoatrial block [Unknown]
  - Drug interaction [Unknown]
  - Syncope [Recovered/Resolved]

NARRATIVE: CASE EVENT DATE: 20140703
